FAERS Safety Report 20430283 (Version 1)
Quarter: 2022Q1

REPORT INFORMATION
  Report Type: Report from Study
  Country: FR (occurrence: FR)
  Receive Date: 20220204
  Receipt Date: 20220204
  Transmission Date: 20220423
  Serious: Yes (Hospitalization)
  Sender: FDA-Public Use
  Company Number: FR-SERVIER-S20005375

PATIENT

DRUGS (7)
  1. PEGASPARGASE [Suspect]
     Active Substance: PEGASPARGASE
     Indication: Acute lymphocytic leukaemia
     Dosage: 900 IU
     Route: 042
     Dates: start: 20200330
  2. TN UNSPECIFIED [Concomitant]
     Indication: Acute lymphocytic leukaemia
     Dosage: 1 MG
     Route: 042
     Dates: start: 20200327
  3. TN UNSPECIFIED [Concomitant]
     Indication: Acute lymphocytic leukaemia
     Dosage: 50 MG
     Route: 042
     Dates: start: 20200506
  4. TN UNSPECIFIED [Concomitant]
     Indication: Acute lymphocytic leukaemia
     Dosage: 12 MG
     Route: 037
     Dates: start: 20200330
  5. TN UNSPECIFIED [Concomitant]
     Indication: Acute lymphocytic leukaemia
     Dosage: 40 MG
     Route: 050
     Dates: start: 20200504
  6. TN UNSPECIFIED [Concomitant]
     Indication: Acute lymphocytic leukaemia
     Dosage: 18 MG
     Route: 042
     Dates: start: 20200327
  7. TN UNSPECIFIED [Concomitant]
     Indication: Acute lymphocytic leukaemia
     Dosage: DOSE NOT REPORTED
     Route: 042

REACTIONS (1)
  - Venoocclusive liver disease [Not Recovered/Not Resolved]

NARRATIVE: CASE EVENT DATE: 20200519
